FAERS Safety Report 5723253-6 (Version None)
Quarter: 2008Q2

REPORT INFORMATION
  Report Type: 
  Country: None (occurrence: None)
  Receive Date: 20080425
  Receipt Date: 20080409
  Transmission Date: 20081010
  Serious: Yes (Other)
  Sender: FDA-Public Use
  Company Number: JPI-P-003354

PATIENT
  Age: 30 Year
  Sex: Female

DRUGS (7)
  1. LUVOX [Suspect]
     Indication: DEPRESSION
     Dosage: (25 MG), ORAL
     Route: 048
     Dates: start: 19990514, end: 19990514
  2. LUVOX [Suspect]
     Indication: PAIN
     Dosage: (25 MG), ORAL
     Route: 048
     Dates: start: 19990514, end: 19990514
  3. CLOMIPRAMINE HCL [Concomitant]
  4. AMITRIPTLINE HCL [Concomitant]
  5. ALPRAZOLAM [Concomitant]
  6. TEPRENONE (TEPRENONE) [Concomitant]
  7. BROTIZOLAM (BROTIZOLAM) [Concomitant]

REACTIONS (5)
  - AGITATION [None]
  - HOMICIDAL IDEATION [None]
  - IRRITABILITY [None]
  - MOOD ALTERED [None]
  - NAUSEA [None]
